FAERS Safety Report 25996366 (Version 1)
Quarter: 2025Q4

REPORT INFORMATION
  Report Type: Spontaneous
  Country: EU (occurrence: EU)
  Receive Date: 20251104
  Receipt Date: 20251104
  Transmission Date: 20260118
  Serious: Yes (Hospitalization)
  Sender: MYLAN
  Company Number: None

PATIENT
  Age: 84 Year
  Sex: Female
  Weight: 79 kg

DRUGS (20)
  1. VALACYCLOVIR HYDROCHLORIDE [Suspect]
     Active Substance: VALACYCLOVIR HYDROCHLORIDE
     Indication: Prophylaxis
     Dosage: 1000 MILLIGRAM, QD
     Dates: end: 20250909
  2. VALACYCLOVIR HYDROCHLORIDE [Suspect]
     Active Substance: VALACYCLOVIR HYDROCHLORIDE
     Dosage: 1000 MILLIGRAM, QD
     Route: 048
     Dates: end: 20250909
  3. VALACYCLOVIR HYDROCHLORIDE [Suspect]
     Active Substance: VALACYCLOVIR HYDROCHLORIDE
     Dosage: 1000 MILLIGRAM, QD
     Route: 048
     Dates: end: 20250909
  4. VALACYCLOVIR HYDROCHLORIDE [Suspect]
     Active Substance: VALACYCLOVIR HYDROCHLORIDE
     Dosage: 1000 MILLIGRAM, QD
     Dates: end: 20250909
  5. SPIRONOLACTONE [Suspect]
     Active Substance: SPIRONOLACTONE
     Indication: Hypertension
     Dosage: 75 MILLIGRAM, QD
     Dates: end: 20250909
  6. SPIRONOLACTONE [Suspect]
     Active Substance: SPIRONOLACTONE
     Dosage: 75 MILLIGRAM, QD
     Route: 048
     Dates: end: 20250909
  7. SPIRONOLACTONE [Suspect]
     Active Substance: SPIRONOLACTONE
     Dosage: 75 MILLIGRAM, QD
     Route: 048
     Dates: end: 20250909
  8. SPIRONOLACTONE [Suspect]
     Active Substance: SPIRONOLACTONE
     Dosage: 75 MILLIGRAM, QD
     Dates: end: 20250909
  9. JAYPIRCA [Suspect]
     Active Substance: PIRTOBRUTINIB
     Indication: Lymphocytic leukaemia
     Dosage: 200 MILLIGRAM, QD
     Dates: start: 20250829, end: 20250909
  10. JAYPIRCA [Suspect]
     Active Substance: PIRTOBRUTINIB
     Dosage: 200 MILLIGRAM, QD
     Route: 048
     Dates: start: 20250829, end: 20250909
  11. JAYPIRCA [Suspect]
     Active Substance: PIRTOBRUTINIB
     Dosage: 200 MILLIGRAM, QD
     Route: 048
     Dates: start: 20250829, end: 20250909
  12. JAYPIRCA [Suspect]
     Active Substance: PIRTOBRUTINIB
     Dosage: 200 MILLIGRAM, QD
     Dates: start: 20250829, end: 20250909
  13. BACTRIM [Suspect]
     Active Substance: SULFAMETHOXAZOLE\TRIMETHOPRIM
     Indication: Prophylaxis
     Dosage: 1 DOSAGE FORM, Q3W
     Dates: end: 20250909
  14. BACTRIM [Suspect]
     Active Substance: SULFAMETHOXAZOLE\TRIMETHOPRIM
     Dosage: 1 DOSAGE FORM, Q3W
     Route: 048
     Dates: end: 20250909
  15. BACTRIM [Suspect]
     Active Substance: SULFAMETHOXAZOLE\TRIMETHOPRIM
     Dosage: 1 DOSAGE FORM, Q3W
     Route: 048
     Dates: end: 20250909
  16. BACTRIM [Suspect]
     Active Substance: SULFAMETHOXAZOLE\TRIMETHOPRIM
     Dosage: 1 DOSAGE FORM, Q3W
     Dates: end: 20250909
  17. CELIPROLOL [Suspect]
     Active Substance: CELIPROLOL
     Indication: Hypertension
     Dosage: 400 MILLIGRAM, QD
     Dates: end: 20250909
  18. CELIPROLOL [Suspect]
     Active Substance: CELIPROLOL
     Dosage: 400 MILLIGRAM, QD
     Route: 048
     Dates: end: 20250909
  19. CELIPROLOL [Suspect]
     Active Substance: CELIPROLOL
     Dosage: 400 MILLIGRAM, QD
     Route: 048
     Dates: end: 20250909
  20. CELIPROLOL [Suspect]
     Active Substance: CELIPROLOL
     Dosage: 400 MILLIGRAM, QD
     Dates: end: 20250909

REACTIONS (2)
  - Acute kidney injury [Recovered/Resolved]
  - Sinus node dysfunction [Recovered/Resolved]

NARRATIVE: CASE EVENT DATE: 20250901
